FAERS Safety Report 8910779 (Version 2)
Quarter: 2013Q1

REPORT INFORMATION
  Report Type: Spontaneous
  Country: US (occurrence: US)
  Receive Date: 20121115
  Receipt Date: 20130211
  Transmission Date: 20140127
  Serious: No
  Sender: FDA-Public Use
  Company Number: US-BRISTOL-MYERS SQUIBB COMPANY-16770851

PATIENT
  Age: 29 Year
  Sex: Female
  Weight: 104.31 kg

DRUGS (1)
  1. GLUCOPHAGE [Suspect]
     Indication: POLYCYSTIC OVARIES
     Dosage: INTERRUPTED ON 13-JUL-12
     Route: 048
     Dates: start: 20120712

REACTIONS (1)
  - Hypersensitivity [Unknown]
